FAERS Safety Report 6900484-0 (Version None)
Quarter: 2010Q3

REPORT INFORMATION
  Report Type: 
  Country: None (occurrence: None)
  Receive Date: 20100803
  Receipt Date: 20100722
  Transmission Date: 20110219
  Serious: Yes (Hospitalization)
  Sender: FDA-Public Use
  Company Number: FR-PFIZER INC-2010091539

PATIENT
  Age: 86 Year
  Sex: Female

DRUGS (5)
  1. ALDACTONE [Suspect]
     Dosage: 25 MG PER DAY
     Route: 048
  2. LASIX [Suspect]
     Indication: HYPERTENSION
     Dosage: 25 MG, SINGLE
     Route: 042
     Dates: start: 20100416, end: 20100416
  3. ESIDRIX [Suspect]
     Indication: HYPERTENSION
     Dosage: 25 MG, SINGLE
     Route: 048
     Dates: start: 20100416, end: 20100416
  4. PRAZOSIN HCL [Concomitant]
     Dosage: 5 MG
  5. AMIODARONE [Concomitant]

REACTIONS (2)
  - EPISTAXIS [None]
  - RENAL FAILURE [None]
